FAERS Safety Report 6049358-0 (Version None)
Quarter: 2009Q1

REPORT INFORMATION
  Report Type: 
  Country: None (occurrence: None)
  Receive Date: 20090123
  Receipt Date: 20090113
  Transmission Date: 20090719
  Serious: Yes (Disabling, Other)
  Sender: FDA-Public Use
  Company Number: GB-PFIZER INC-2009155860

PATIENT

DRUGS (3)
  1. LYRICA [Suspect]
     Indication: NEURALGIA
     Route: 048
     Dates: start: 20051201
  2. MEGESTROL ACETATE [Concomitant]
     Indication: BREAST CANCER
     Dosage: 80 MG, 1X/DAY
     Route: 048
     Dates: start: 20050701
  3. NORTRIPTYLINE [Concomitant]
     Indication: PAIN
     Dosage: 15 MG, 1X/DAY
     Route: 048
     Dates: start: 20080801

REACTIONS (12)
  - APHASIA [None]
  - BALANCE DISORDER [None]
  - DIZZINESS [None]
  - DRY EYE [None]
  - DRY MOUTH [None]
  - FALL [None]
  - HYPERTONIC BLADDER [None]
  - ORTHOSTATIC HYPOTENSION [None]
  - SUPRAVENTRICULAR TACHYCARDIA [None]
  - SYNCOPE [None]
  - VITREOUS DETACHMENT [None]
  - WEIGHT INCREASED [None]
